FAERS Safety Report 12233068 (Version 1)
Quarter: 2016Q2

REPORT INFORMATION
  Report Type: Other
  Country: GB (occurrence: GB)
  Receive Date: 20160403
  Receipt Date: 20160403
  Transmission Date: 20160815
  Serious: Yes (Death, Other)
  Sender: FDA-Public Use
  Company Number: GB-MYLANLABS-2016M1013426

PATIENT

DRUGS (2)
  1. CLARITHROMYCIN. [Suspect]
     Active Substance: CLARITHROMYCIN
     Indication: PULMONARY SEPSIS
     Dosage: UNK
  2. AMIODARONE [Suspect]
     Active Substance: AMIODARONE
     Indication: ATRIAL FLUTTER
     Dosage: UNK

REACTIONS (5)
  - Electrocardiogram QT prolonged [Not Recovered/Not Resolved]
  - Drug interaction [Unknown]
  - Ventricular tachycardia [Not Recovered/Not Resolved]
  - Cardiac arrest [Fatal]
  - Ventricular extrasystoles [Not Recovered/Not Resolved]
